FAERS Safety Report 8184767-5 (Version None)
Quarter: 2012Q1

REPORT INFORMATION
  Report Type: 
  Country: None (occurrence: None)
  Receive Date: 20120305
  Receipt Date: 20120305
  Transmission Date: 20120608
  Serious: Yes (Disabling, Other)
  Sender: FDA-Public Use
  Company Number: None

PATIENT
  Age: 36 Year
  Sex: Female
  Weight: 113.39 kg

DRUGS (1)
  1. NASONEX [Suspect]
     Indication: MULTIPLE ALLERGIES
     Dosage: 1 SPRAY
     Route: 045
     Dates: start: 20111205, end: 20120210

REACTIONS (5)
  - ANXIETY [None]
  - INSOMNIA [None]
  - PALPITATIONS [None]
  - MYALGIA [None]
  - GLAUCOMA [None]
